FAERS Safety Report 17779121 (Version 2)
Quarter: 2020Q2

REPORT INFORMATION
  Report Type: Spontaneous
  Country: SK (occurrence: SK)
  Receive Date: 20200513
  Receipt Date: 20200602
  Transmission Date: 20200714
  Serious: Yes (Death, Other)
  Sender: FDA-Public Use
  Company Number: SK-PFIZER INC-2020189989

PATIENT
  Age: 71 Year
  Sex: Male

DRUGS (2)
  1. XALKORI [Suspect]
     Active Substance: CRIZOTINIB
     Indication: LUNG CARCINOMA CELL TYPE UNSPECIFIED STAGE III
     Dosage: 250 MG
     Route: 048
     Dates: start: 2014, end: 201508
  2. XALKORI [Suspect]
     Active Substance: CRIZOTINIB
     Dosage: 200 MG
     Route: 048
     Dates: start: 20150814

REACTIONS (3)
  - Peripheral swelling [Unknown]
  - Cardiac failure [Fatal]
  - Electrocardiogram QT prolonged [Unknown]

NARRATIVE: CASE EVENT DATE: 2015
